FAERS Safety Report 8232958-7 (Version None)
Quarter: 2012Q1

REPORT INFORMATION
  Report Type: 
  Country: None (occurrence: None)
  Receive Date: 20120325
  Receipt Date: 20120321
  Transmission Date: 20120608
  Serious: Yes (Death, Hospitalization, Other)
  Sender: FDA-Public Use
  Company Number: US-BRISTOL-MYERS SQUIBB COMPANY-16273401

PATIENT
  Age: 63 Year
  Sex: Female
  Weight: 54 kg

DRUGS (12)
  1. FLOVENT [Concomitant]
     Dates: start: 20060426, end: 20110105
  2. LISINOPRIL [Concomitant]
     Dates: start: 20070302, end: 20111229
  3. PROBIOTICA [Concomitant]
     Route: 048
     Dates: start: 20101026, end: 20111229
  4. MYCOPHENOLATE MOFETIL (CELLCEPT) [Suspect]
     Indication: RENAL TRANSPLANT
     Route: 048
     Dates: start: 20070225, end: 20111221
  5. EXTRA STRENGTH TYLENOL [Concomitant]
     Dates: end: 20111229
  6. SIMVASTATIN [Concomitant]
     Dates: start: 20070101, end: 20111229
  7. LORTAB [Concomitant]
     Dates: end: 20110105
  8. PREDNISONE TAB [Suspect]
     Indication: RENAL TRANSPLANT
     Route: 048
     Dates: start: 20070226
  9. CALCIUM + VITAMIN D [Concomitant]
     Dates: start: 20070319, end: 20111229
  10. BELATACEPT [Suspect]
     Indication: RENAL TRANSPLANT
     Route: 042
     Dates: start: 20070224, end: 20111221
  11. SPIRIVA [Concomitant]
     Dosage: ROUTE: ORAL INHALATION
     Route: 048
     Dates: start: 20060101, end: 20120105
  12. CIPROFLOXACIN HYDROCHLORIDE [Concomitant]
     Dates: end: 20111229

REACTIONS (14)
  - HAEMATOCRIT DECREASED [None]
  - NEUTROPHIL COUNT INCREASED [None]
  - PLATELET COUNT DECREASED [None]
  - BLOOD SODIUM DECREASED [None]
  - PROTEIN TOTAL DECREASED [None]
  - NON-SMALL CELL LUNG CANCER [None]
  - HAEMOGLOBIN DECREASED [None]
  - PULMONARY OEDEMA [None]
  - PLEURAL EFFUSION [None]
  - ATELECTASIS [None]
  - BLOOD GLUCOSE INCREASED [None]
  - ADRENAL MASS [None]
  - BLOOD CHLORIDE DECREASED [None]
  - BLOOD ALBUMIN DECREASED [None]
